FAERS Safety Report 5922072-5 (Version None)
Quarter: 2008Q4

REPORT INFORMATION
  Report Type: 
  Country: None (occurrence: None)
  Receive Date: 20081017
  Receipt Date: 20081015
  Transmission Date: 20090506
  Serious: Yes (Hospitalization)
  Sender: FDA-Public Use
  Company Number: B0540541A

PATIENT
  Age: 75 Year
  Sex: Male

DRUGS (2)
  1. ARIXTRA [Suspect]
     Dosage: 2.5MG PER DAY
     Route: 058
     Dates: start: 20080610, end: 20080622
  2. SINTROM [Suspect]
     Route: 048
     Dates: start: 20080610, end: 20080620

REACTIONS (5)
  - ABDOMINAL PAIN [None]
  - HAEMORRHAGE [None]
  - INCORRECT DOSE ADMINISTERED [None]
  - INTERNATIONAL NORMALISED RATIO INCREASED [None]
  - RETROPERITONEAL HAEMATOMA [None]
